FAERS Safety Report 20354026 (Version 2)
Quarter: 2022Q1

REPORT INFORMATION
  Report Type: Spontaneous
  Country: GR (occurrence: GR)
  Receive Date: 20220120
  Receipt Date: 20220201
  Transmission Date: 20220424
  Serious: No
  Sender: FDA-Public Use
  Company Number: GR-BEH-2022140922

PATIENT
  Age: 31 Year
  Sex: Female

DRUGS (2)
  1. RHOPHYLAC [Suspect]
     Active Substance: HUMAN RHO(D) IMMUNE GLOBULIN
     Indication: Vaginal haemorrhage
     Dosage: 1500 INTERNATIONAL UNIT, TOT
     Route: 065
     Dates: start: 202112, end: 202112
  2. RHOPHYLAC [Suspect]
     Active Substance: HUMAN RHO(D) IMMUNE GLOBULIN
     Indication: Vaginal haemorrhage
     Dosage: 1500 INTERNATIONAL UNIT, TOT
     Route: 065
     Dates: start: 202112, end: 202112

REACTIONS (3)
  - Coombs indirect test positive [Unknown]
  - Maternal exposure during pregnancy [Unknown]
  - False negative investigation result [Unknown]

NARRATIVE: CASE EVENT DATE: 20220101
